FAERS Safety Report 9987185 (Version 1)
Quarter: 2014Q1

REPORT INFORMATION
  Report Type: Report from Study
  Country: US (occurrence: US)
  Receive Date: 20140307
  Receipt Date: 20140307
  Transmission Date: 20141002
  Serious: No
  Sender: FDA-Public Use
  Company Number: US-ABBVIE-13P-163-1080687-00

PATIENT
  Age: 48 Year
  Sex: Female

DRUGS (16)
  1. HUMIRA [Suspect]
     Indication: ANKYLOSING SPONDYLITIS
     Dates: start: 20130412
  2. SYNTHROID [Concomitant]
     Indication: HYPOTHYROIDISM
  3. ENALAPRIL [Concomitant]
     Indication: PRODUCT USED FOR UNKNOWN INDICATION
  4. SPIRONOLACTONE [Concomitant]
     Indication: PRODUCT USED FOR UNKNOWN INDICATION
  5. KCL [Concomitant]
     Indication: BLOOD PRESSURE INCREASED
  6. KCL [Concomitant]
     Indication: CARDIOVASCULAR EVENT PROPHYLAXIS
  7. HCTZ [Concomitant]
     Indication: BLOOD PRESSURE INCREASED
  8. HCTZ [Concomitant]
     Indication: CARDIOVASCULAR EVENT PROPHYLAXIS
  9. OMEPRAZOLE [Concomitant]
     Indication: PRODUCT USED FOR UNKNOWN INDICATION
  10. MOBIC [Concomitant]
     Indication: ANKYLOSING SPONDYLITIS
  11. CHROMIUM PICOLINATE [Concomitant]
     Indication: PRODUCT USED FOR UNKNOWN INDICATION
  12. ZINC [Concomitant]
     Indication: PRODUCT USED FOR UNKNOWN INDICATION
     Dosage: OCCASIONAL
  13. MAGNESIUM SUPPLEMENTS [Concomitant]
     Indication: PRODUCT USED FOR UNKNOWN INDICATION
  14. ARTHRITIS PAIN MEDICATION [Concomitant]
     Indication: PRODUCT USED FOR UNKNOWN INDICATION
     Dosage: AS NEEDED
  15. BYETTA [Concomitant]
     Indication: PROPHYLAXIS
  16. 2 DIFFERENT ASTHMA MEDICATIONS [Concomitant]
     Indication: PRODUCT USED FOR UNKNOWN INDICATION

REACTIONS (4)
  - Fatigue [Not Recovered/Not Resolved]
  - Swelling face [Not Recovered/Not Resolved]
  - Arthralgia [Not Recovered/Not Resolved]
  - Musculoskeletal discomfort [Not Recovered/Not Resolved]
